FAERS Safety Report 9536479 (Version 1)
Quarter: 2013Q2

REPORT INFORMATION
  Report Type: Spontaneous
  Country: US (occurrence: None)
  Receive Date: 20130507
  Receipt Date: 20130507
  Transmission Date: 20140414
  Serious: No
  Sender: FDA-Public Use
  Company Number: PHEH2012US024237

PATIENT
  Age: 72 Year
  Sex: Female

DRUGS (1)
  1. AFINITOR (RAD) UNKNOWN [Suspect]
     Indication: BREAST CANCER
     Route: 048
     Dates: start: 20120104

REACTIONS (4)
  - Joint swelling [None]
  - Anaemia [None]
  - Oedema peripheral [None]
  - Fatigue [None]
